FAERS Safety Report 22108355 (Version 1)
Quarter: 2023Q1

REPORT INFORMATION
  Report Type: Spontaneous
  Country: JP (occurrence: JP)
  Receive Date: 20230317
  Receipt Date: 20230317
  Transmission Date: 20230417
  Serious: Yes (Congenital Anomaly)
  Sender: FDA-Public Use
  Company Number: JP-BRISTOL-MYERS SQUIBB COMPANY-2022-119022

PATIENT
  Age: 67 Year
  Sex: Female
  Weight: 55.2 kg

DRUGS (8)
  1. REVLIMID [Suspect]
     Active Substance: LENALIDOMIDE
     Indication: Follicular lymphoma
     Route: 048
     Dates: start: 20210923, end: 20211013
  2. REVLIMID [Suspect]
     Active Substance: LENALIDOMIDE
     Route: 048
     Dates: start: 20211021, end: 20211027
  3. REVLIMID [Suspect]
     Active Substance: LENALIDOMIDE
     Route: 048
     Dates: start: 20211118, end: 20211201
  4. REVLIMID [Suspect]
     Active Substance: LENALIDOMIDE
     Route: 048
     Dates: start: 20211216, end: 20211229
  5. RITUXIMAB [Suspect]
     Active Substance: RITUXIMAB
     Indication: Follicular lymphoma
     Dates: start: 20210922, end: 20210922
  6. RITUXIMAB [Suspect]
     Active Substance: RITUXIMAB
     Dates: start: 20211020, end: 20211020
  7. RITUXIMAB [Suspect]
     Active Substance: RITUXIMAB
     Dates: start: 20211117, end: 20211117
  8. RITUXIMAB [Suspect]
     Active Substance: RITUXIMAB
     Dates: start: 20211215, end: 20211215

REACTIONS (2)
  - Haematotoxicity [Unknown]
  - EZH2 gene mutation [Unknown]
